FAERS Safety Report 10623757 (Version 1)
Quarter: 2014Q4

REPORT INFORMATION
  Report Type: Spontaneous
  Country: US (occurrence: US)
  Receive Date: 20141203
  Receipt Date: 20141203
  Transmission Date: 20150529
  Serious: No
  Sender: FDA-Public Use
  Company Number: US-SA-2013SA123231

PATIENT
  Age: 49 Year
  Sex: Female

DRUGS (8)
  1. HYDRALAZINE [Concomitant]
     Active Substance: HYDRALAZINE HYDROCHLORIDE
  2. CLONIDINE. [Concomitant]
     Active Substance: CLONIDINE
  3. RENVELA [Suspect]
     Active Substance: SEVELAMER CARBONATE
     Indication: BLOOD PHOSPHORUS INCREASED
     Dosage: 2 TABLETS THREE TIMES PER DAY WITH MEALS AND 2 TABLETA TWICE PER DAY
     Route: 065
     Dates: start: 2012
  4. TEMAZEPAM. [Concomitant]
     Active Substance: TEMAZEPAM
  5. DIOVAN [Concomitant]
     Active Substance: VALSARTAN
  6. NIFEDIPINE. [Concomitant]
     Active Substance: NIFEDIPINE
  7. GLYCOSIDE [Concomitant]
  8. CAPTOPRIL. [Concomitant]
     Active Substance: CAPTOPRIL

REACTIONS (3)
  - Pruritus [Not Recovered/Not Resolved]
  - Mass [Unknown]
  - Paraesthesia [Unknown]

NARRATIVE: CASE EVENT DATE: 2012
